FAERS Safety Report 18049892 (Version 1)
Quarter: 2020Q3

REPORT INFORMATION
  Report Type: Spontaneous
  Country: GB (occurrence: GB)
  Receive Date: 20200721
  Receipt Date: 20200721
  Transmission Date: 20201103
  Serious: Yes (Life-Threatening, Hospitalization, Disabling, Other)
  Sender: FDA-Public Use
  Company Number: GB-PFIZER INC-2020276281

PATIENT
  Age: 28 Year
  Sex: Female

DRUGS (2)
  1. MISOPROSTOL. [Suspect]
     Active Substance: MISOPROSTOL
     Indication: ABORTION INDUCED
     Dosage: 800UG
     Route: 048
     Dates: start: 20200627, end: 20200627
  2. MIFEPRISTONE [Suspect]
     Active Substance: MIFEPRISTONE
     Indication: ABORTION INDUCED
     Dosage: 600 MG
     Route: 048
     Dates: start: 20200627, end: 20200627

REACTIONS (6)
  - Unresponsive to stimuli [Unknown]
  - Hemiparesis [Unknown]
  - Off label use [Unknown]
  - Aphasia [Unknown]
  - Product use in unapproved indication [Unknown]
  - Cerebrovascular accident [Not Recovered/Not Resolved]

NARRATIVE: CASE EVENT DATE: 20200627
